FAERS Safety Report 8741180 (Version 2)
Quarter: 2012Q4

REPORT INFORMATION
  Report Type: 
  Country: US (occurrence: US)
  Receive Date: 20120824
  Receipt Date: 20121119
  Transmission Date: 20130627
  Serious: No
  Sender: FDA-Public Use
  Company Number: US-ASTRAZENECA-2012SE00991

PATIENT
  Age: 74 Year
  Sex: Female

DRUGS (1)
  1. SYMBICORT PMDI [Suspect]
     Indication: ASTHMA
     Dosage: 160/4.5 MCG, TWO PUFFS EVERY MORNING
     Route: 055

REACTIONS (3)
  - Dyspnoea [Unknown]
  - Vertigo [Unknown]
  - Off label use [Unknown]
